FAERS Safety Report 5284703-5 (Version None)
Quarter: 2007Q1

REPORT INFORMATION
  Report Type: 
  Country: None (occurrence: None)
  Receive Date: 20061226
  Receipt Date: 20060901
  Transmission Date: 20070707
  Serious: No
  Sender: FDA-Public Use
  Company Number: 2006PV020734

PATIENT
  Age: 58 Year
  Sex: Female

DRUGS (4)
  1. SYMLIN [Suspect]
     Indication: DIABETES MELLITUS NON-INSULIN-DEPENDENT
     Dosage: SEE IMAGE
     Route: 058
     Dates: start: 20060804, end: 20060824
  2. SYMLIN [Suspect]
     Indication: DIABETES MELLITUS NON-INSULIN-DEPENDENT
     Dosage: SEE IMAGE
     Route: 058
     Dates: start: 20060825
  3. GLUCOPHAGE [Concomitant]
  4. INSULIN [Concomitant]

REACTIONS (5)
  - ABDOMINAL DISTENSION [None]
  - DRUG EFFECT DECREASED [None]
  - FREQUENT BOWEL MOVEMENTS [None]
  - HUNGER [None]
  - INFREQUENT BOWEL MOVEMENTS [None]
